FAERS Safety Report 15408524 (Version 1)
Quarter: 2018Q4

REPORT INFORMATION
  Report Type: Spontaneous
  Country: GB (occurrence: FR)
  Receive Date: 20180920
  Receipt Date: 20180920
  Transmission Date: 20190204
  Serious: Yes (Life-Threatening, Hospitalization)
  Sender: FDA-Public Use
  Company Number: FR-FRESENIUS KABI-FK201809683

PATIENT
  Age: 48 Year
  Sex: Female

DRUGS (5)
  1. PROPOFOL (MANUFACTURER UNKNOWN) [Suspect]
     Active Substance: PROPOFOL
     Indication: CHOLECYSTECTOMY
     Route: 042
     Dates: start: 20180525, end: 20180525
  2. MIDAZOLAM [Suspect]
     Active Substance: MIDAZOLAM HYDROCHLORIDE
     Indication: CHOLECYSTECTOMY
     Route: 042
     Dates: start: 20180525, end: 20180525
  3. SUFENTANIL [Suspect]
     Active Substance: SUFENTANIL
     Indication: CHOLECYSTECTOMY
     Route: 042
     Dates: start: 20180525, end: 20180525
  4. CELOCURINE (SUXAMETHONIUM CHLORIDE) [Suspect]
     Active Substance: SUCCINYLCHOLINE CHLORIDE
     Indication: CHOLECYSTECTOMY
     Route: 042
     Dates: start: 20180525, end: 20180525
  5. KETAMINE [Suspect]
     Active Substance: KETAMINE
     Indication: CHOLECYSTECTOMY
     Route: 042
     Dates: start: 20180525, end: 20180525

REACTIONS (1)
  - Type I hypersensitivity [Recovered/Resolved]

NARRATIVE: CASE EVENT DATE: 20180525
